FAERS Safety Report 23214219 (Version 2)
Quarter: 2024Q1

REPORT INFORMATION
  Report Type: Spontaneous
  Country: US (occurrence: US)
  Receive Date: 20231121
  Receipt Date: 20240109
  Transmission Date: 20240410
  Serious: No
  Sender: FDA-Public Use
  Company Number: US-PFIZER INC-PV202300186635

PATIENT
  Age: 70 Year
  Sex: Female

DRUGS (2)
  1. IBRANCE [Suspect]
     Active Substance: PALBOCICLIB
     Indication: Neoplasm malignant
     Dosage: 125 MG (ON 21 DAYS OFF FOR 7, 7 YEARS AGO)
  2. IBRANCE [Suspect]
     Active Substance: PALBOCICLIB
     Dosage: 125 MG (FOR 21 DAYS THEN OFF FOR 7 DAYS, 7 YEARS AGO)

REACTIONS (3)
  - Illness [Unknown]
  - Influenza [Unknown]
  - Sinus disorder [Unknown]
